FAERS Safety Report 18566876 (Version 1)
Quarter: 2020Q4

REPORT INFORMATION
  Report Type: Spontaneous
  Country: US (occurrence: US)
  Receive Date: 20201201
  Receipt Date: 20201201
  Transmission Date: 20210114
  Serious: No
  Sender: FDA-Public Use
  Company Number: US-GILEAD-2020-0506587

PATIENT
  Age: 64 Year
  Sex: Female

DRUGS (4)
  1. VEMLIDY [Suspect]
     Active Substance: TENOFOVIR ALAFENAMIDE FUMARATE
     Indication: VIRAL HEPATITIS CARRIER
  2. VEMLIDY [Suspect]
     Active Substance: TENOFOVIR ALAFENAMIDE FUMARATE
     Indication: VIRAL HEPATITIS CARRIER
     Dosage: 1 DOSAGE FORM, QD
     Route: 048
  3. CENTRUM MY OMEGA 3 [Concomitant]
  4. EXFORGE [Concomitant]
     Active Substance: AMLODIPINE BESYLATE\VALSARTAN

REACTIONS (1)
  - Product dose omission issue [Recovered/Resolved]
